FAERS Safety Report 24986674 (Version 1)
Quarter: 2025Q1

REPORT INFORMATION
  Report Type: Spontaneous
  Country: US (occurrence: None)
  Receive Date: 20250215
  Receipt Date: 20250215
  Transmission Date: 20250408
  Serious: Yes (Disabling)
  Sender: FDA-CTU
  Company Number: None

PATIENT
  Sex: Female

DRUGS (1)
  1. HYDROQUINONE CREAM [Suspect]
     Active Substance: HYDROQUINONE

REACTIONS (5)
  - Genital burning sensation [None]
  - Genital discomfort [None]
  - Product quality issue [None]
  - Product odour abnormal [None]
  - Product formulation issue [None]

NARRATIVE: CASE EVENT DATE: 20250207
